FAERS Safety Report 9548553 (Version 2)
Quarter: 2013Q4

REPORT INFORMATION
  Report Type: Spontaneous
  Country: US (occurrence: US)
  Receive Date: 20130924
  Receipt Date: 20131008
  Transmission Date: 20140711
  Serious: Yes (Other)
  Sender: FDA-Public Use
  Company Number: US-PFIZER INC-2013271359

PATIENT
  Sex: Female

DRUGS (1)
  1. LEVOXYL [Suspect]
     Dosage: 50 UG, UNK

REACTIONS (4)
  - Helicobacter gastritis [Unknown]
  - Drug hypersensitivity [Unknown]
  - Throat irritation [Unknown]
  - Oropharyngeal discomfort [Unknown]
